FAERS Safety Report 10363498 (Version 3)
Quarter: 2015Q3

REPORT INFORMATION
  Report Type: Spontaneous
  Country: US (occurrence: US)
  Receive Date: 20140805
  Receipt Date: 20150810
  Transmission Date: 20151125
  Serious: Yes (Disabling, Congenital Anomaly, Other)
  Sender: FDA-Public Use
  Company Number: US-PFIZER INC-2014215103

PATIENT
  Sex: Male
  Weight: 1 kg

DRUGS (1)
  1. ZOLOFT [Suspect]
     Active Substance: SERTRALINE HYDROCHLORIDE
     Indication: DEPRESSION
     Dosage: UNK
     Route: 064
     Dates: start: 198710, end: 199912

REACTIONS (7)
  - Spinal disorder [Unknown]
  - Cerebral palsy [Not Recovered/Not Resolved]
  - Premature baby [Unknown]
  - Maternal exposure during pregnancy [Unknown]
  - Nervous system disorder [Unknown]
  - Persistent foetal circulation [Not Recovered/Not Resolved]
  - Foot deformity [Unknown]

NARRATIVE: CASE EVENT DATE: 19970307
